FAERS Safety Report 14770461 (Version 2)
Quarter: 2018Q3

REPORT INFORMATION
  Report Type: Spontaneous
  Country: US (occurrence: US)
  Receive Date: 20180417
  Receipt Date: 20180919
  Transmission Date: 20181010
  Serious: Yes (Other)
  Sender: FDA-Public Use
  Company Number: US-PFIZER INC-2018154239

PATIENT
  Age: 68 Year
  Sex: Female
  Weight: 57.61 kg

DRUGS (3)
  1. LYRICA [Suspect]
     Active Substance: PREGABALIN
     Indication: FIBROMYALGIA
     Dosage: 200 MG, 3X/DAY
  2. PREMARIN [Suspect]
     Active Substance: ESTROGENS, CONJUGATED
     Indication: HOT FLUSH
  3. PREMARIN [Suspect]
     Active Substance: ESTROGENS, CONJUGATED
     Indication: MOOD SWINGS
     Dosage: 0.625 MG, 1X/DAY
     Route: 048

REACTIONS (13)
  - Weight decreased [Recovered/Resolved]
  - Road traffic accident [Unknown]
  - Myocardial infarction [Unknown]
  - Dysphagia [Recovered/Resolved]
  - Muscle spasms [Unknown]
  - Pharyngeal haemorrhage [Recovered/Resolved]
  - Contusion [Recovered/Resolved]
  - Feeding disorder [Recovered/Resolved]
  - Malaise [Unknown]
  - Drug dependence [Unknown]
  - Haematoma [Recovered/Resolved]
  - Product use in unapproved indication [Unknown]
  - Cerebrovascular accident [Unknown]

NARRATIVE: CASE EVENT DATE: 2017
